FAERS Safety Report 13956443 (Version 3)
Quarter: 2020Q4

REPORT INFORMATION
  Report Type: Report from Study
  Country: None (occurrence: AU)
  Receive Date: 20170911
  Receipt Date: 20201003
  Transmission Date: 20210113
  Serious: Yes (Death, Other)
  Sender: FDA-Public Use
  Company Number: AU-ABBVIE-17K-008-2097715-00

PATIENT
  Sex: Male

DRUGS (2)
  1. DUODOPA [Suspect]
     Active Substance: CARBIDOPA\LEVODOPA
     Indication: PARKINSON^S DISEASE
     Dosage: PEG-J 16HRS
     Route: 050
     Dates: start: 20120313
  2. DUODOPA [Suspect]
     Active Substance: CARBIDOPA\LEVODOPA

REACTIONS (3)
  - Pain [Recovering/Resolving]
  - Gastrointestinal carcinoma [Fatal]
  - Small intestinal obstruction [Fatal]
